FAERS Safety Report 8402632-2 (Version None)
Quarter: 2012Q2

REPORT INFORMATION
  Report Type: 
  Country: None (occurrence: None)
  Receive Date: 20120601
  Receipt Date: 20120529
  Transmission Date: 20120825
  Serious: Yes (Hospitalization)
  Sender: FDA-Public Use
  Company Number: GXKR2010GB05532

PATIENT
  Age: 50 Year
  Sex: Male

DRUGS (6)
  1. OMEPRAZOLE [Suspect]
     Dosage: 40 MG, UNK
     Route: 065
  2. ACETAMINOPHEN W/ CODEINE [Suspect]
     Indication: OSTEOARTHRITIS
     Dosage: 1 DF, UNK
     Route: 048
     Dates: start: 20100223
  3. ACETYLSALICYLIC ACID SRT [Suspect]
     Dosage: 75 MG, UNK
     Route: 048
  4. SIMVASTATIN [Suspect]
     Dosage: 40 MG, UNK
     Route: 048
  5. ACIDEX [Suspect]
     Dosage: UNK
     Dates: start: 20100128
  6. METFORMIN HCL [Concomitant]
     Dosage: 1.5 G, UNK
     Route: 048

REACTIONS (1)
  - ABDOMINAL PAIN UPPER [None]
